FAERS Safety Report 9294862 (Version 2)
Quarter: 2013Q2

REPORT INFORMATION
  Report Type: Spontaneous
  Country: US (occurrence: None)
  Receive Date: 20121227
  Receipt Date: 20130507
  Transmission Date: 20140414
  Serious: Yes (Other)
  Sender: FDA-Public Use
  Company Number: PHEH2012US022769

PATIENT
  Age: 13 Year
  Sex: Female
  Weight: 37.1 kg

DRUGS (7)
  1. AFINITOR (RAD) UNKNOWN [Suspect]
     Indication: ASTROCYTOMA
     Route: 048
     Dates: start: 20121110, end: 20121207
  2. AFINITOR (RAD) UNKNOWN [Suspect]
     Route: 048
     Dates: start: 20121110, end: 20121207
  3. FELBATOL (FELBAMATE) [Concomitant]
  4. TRILEPTAL (OXCARBAZEPINE) [Concomitant]
  5. SEROQUEL (QUETIAPINE FUMARATE) [Concomitant]
  6. CLONIDINE [Concomitant]
  7. MELATONIN [Concomitant]

REACTIONS (3)
  - Ear infection [None]
  - Drooling [None]
  - Dizziness [None]
